FAERS Safety Report 13982535 (Version 1)
Quarter: 2017Q3

REPORT INFORMATION
  Report Type: Spontaneous
  Country: US (occurrence: None)
  Receive Date: 20170918
  Receipt Date: 20170918
  Transmission Date: 20171128
  Serious: Yes (Hospitalization)
  Sender: FDA-Public Use
  Company Number: None

PATIENT
  Age: 63 Year
  Sex: Male

DRUGS (1)
  1. NOVOLOG [Suspect]
     Active Substance: INSULIN ASPART
     Indication: DIABETES MELLITUS
     Dosage: 100 UNITS/ML 45 UNITS PER DAY USED PER MEAL...?
     Dates: start: 20160701, end: 20170809

REACTIONS (2)
  - Device malfunction [None]
  - Blood glucose increased [None]

NARRATIVE: CASE EVENT DATE: 20160819
